FAERS Safety Report 4878486-8 (Version None)
Quarter: 2006Q1

REPORT INFORMATION
  Report Type: 
  Country: None (occurrence: None)
  Receive Date: 20060110
  Receipt Date: 20051228
  Transmission Date: 20060701
  Serious: No
  Sender: FDA-Public Use
  Company Number: FABR-11239

PATIENT
  Age: 49 Year
  Sex: Male

DRUGS (1)
  1. FABRAZYME [Suspect]
     Indication: FABRY'S DISEASE
     Dosage: 70 MG Q2WKS IV
     Route: 042
     Dates: start: 20030729, end: 20050601

REACTIONS (7)
  - CELLULITIS [None]
  - CHILLS [None]
  - DISEASE RECURRENCE [None]
  - INFUSION RELATED REACTION [None]
  - MALAISE [None]
  - OSTEOMYELITIS [None]
  - SKIN ULCER [None]
